FAERS Safety Report 14893758 (Version 1)
Quarter: 2018Q2

REPORT INFORMATION
  Report Type: Spontaneous
  Country: US (occurrence: US)
  Receive Date: 20180426
  Receipt Date: 20180426
  Transmission Date: 20180711
  Serious: Yes (Disabling)
  Sender: FDA-Public Use
  Company Number: None

PATIENT
  Age: 62 Year
  Sex: Female
  Weight: 56.7 kg

DRUGS (14)
  1. RESTASIS [Concomitant]
     Active Substance: CYCLOSPORINE
  2. OMEGA [Concomitant]
     Active Substance: CONVALLARIA MAJALIS\CRATAEGUS LAEVIGATA LEAF\PROXYPHYLLINE
  3. LAMICTAL [Suspect]
     Active Substance: LAMOTRIGINE
     Indication: BASEDOW^S DISEASE
     Dosage: 9 YEARS AGO
     Route: 048
  4. MULTI-VITAMIN [Concomitant]
     Active Substance: .ALPHA.-TOCOPHEROL ACETATE, DL-\ASCORBIC ACID\CYANOCOBALAMIN\FLUORIDE ION\FOLIC ACID\NIACIN\PYRIDOXINE\RIBOFLAVIN\THIAMINE\VITAMIN A\VITAMIN D
  5. LAXATIVE [Concomitant]
     Active Substance: UNSPECIFIED INGREDIENT
  6. STEROID [Concomitant]
     Active Substance: UNSPECIFIED INGREDIENT
  7. SYNTHROID [Concomitant]
     Active Substance: LEVOTHYROXINE SODIUM
  8. COENZYME Q10 [Concomitant]
     Active Substance: UBIDECARENONE
  9. RESCUE INHALERS [Concomitant]
     Active Substance: UNSPECIFIED INGREDIENT
  10. LAMOTRIGINE. [Concomitant]
     Active Substance: LAMOTRIGINE
  11. ESTROGEN [Concomitant]
     Active Substance: ESTROGENS
  12. XANAX [Concomitant]
     Active Substance: ALPRAZOLAM
  13. BIOTIN [Concomitant]
     Active Substance: BIOTIN
  14. PROBIOTICS [Concomitant]
     Active Substance: PROBIOTICS NOS

REACTIONS (22)
  - Insomnia [None]
  - Psychomotor skills impaired [None]
  - Temperature intolerance [None]
  - Musculoskeletal pain [None]
  - Hypothyroidism [None]
  - Tremor [None]
  - Dysgeusia [None]
  - Aura [None]
  - Photophobia [None]
  - Hyperaesthesia [None]
  - Neck pain [None]
  - Frustration tolerance decreased [None]
  - Headache [None]
  - Anxiety [None]
  - Emotional disorder [None]
  - Loss of consciousness [None]
  - Fatigue [None]
  - Syncope [None]
  - Somnambulism [None]
  - Nausea [None]
  - Vomiting [None]
  - Floating patella [None]
